FAERS Safety Report 20361225 (Version 1)
Quarter: 2022Q1

REPORT INFORMATION
  Report Type: Spontaneous
  Country: US (occurrence: None)
  Receive Date: 20220120
  Receipt Date: 20220120
  Transmission Date: 20220423
  Serious: No
  Sender: FDA-Public Use
  Company Number: None

PATIENT
  Age: 22 Year
  Sex: Male

DRUGS (4)
  1. TISAGENLECLEUCEL [Suspect]
     Active Substance: TISAGENLECLEUCEL
  2. TOCILIZUMAB [Concomitant]
     Active Substance: TOCILIZUMAB
  3. DEXAMETHASONE [Concomitant]
     Active Substance: DEXAMETHASONE
  4. METHYLPREDNISOLONE [Concomitant]
     Active Substance: METHYLPREDNISOLONE

REACTIONS (15)
  - Heart rate increased [None]
  - Escherichia bacteraemia [None]
  - Fatigue [None]
  - Hypoxia [None]
  - Headache [None]
  - Neurotoxicity [None]
  - Haemorrhage [None]
  - Visual impairment [None]
  - Pain [None]
  - Nausea [None]
  - Vomiting [None]
  - Papilloedema [None]
  - Liver function test increased [None]
  - Paraesthesia [None]
  - Hypoaesthesia [None]

NARRATIVE: CASE EVENT DATE: 20211125
